FAERS Safety Report 14935508 (Version 1)
Quarter: 2018Q2

REPORT INFORMATION
  Report Type: Spontaneous
  Country: US (occurrence: US)
  Receive Date: 20180524
  Receipt Date: 20180524
  Transmission Date: 20180711
  Serious: Yes (Other)
  Sender: FDA-Public Use
  Company Number: US-TESARO, INC-US-2018TSO01029

PATIENT

DRUGS (1)
  1. ZEJULA [Suspect]
     Active Substance: NIRAPARIB
     Indication: PRODUCT USED FOR UNKNOWN INDICATION
     Dosage: UNK
     Dates: start: 20170901

REACTIONS (7)
  - Adverse drug reaction [Unknown]
  - Abdominal pain [Unknown]
  - Disease progression [Unknown]
  - Sinus disorder [Unknown]
  - Tumour marker increased [Unknown]
  - Insomnia [Unknown]
  - Abdominal distension [Unknown]
